FAERS Safety Report 8578687-1 (Version None)
Quarter: 2012Q3

REPORT INFORMATION
  Report Type: 
  Country: None (occurrence: None)
  Receive Date: 20120808
  Receipt Date: 20120803
  Transmission Date: 20120928
  Serious: No
  Sender: FDA-Public Use
  Company Number: PHHY2012LB056893

PATIENT
  Sex: Male

DRUGS (8)
  1. LESCOL [Concomitant]
     Dosage: 1 DF, DAILY
     Route: 048
     Dates: start: 20050101
  2. BETASERC [Concomitant]
     Dosage: 1 DF, DAILY
     Route: 048
  3. TASIGNA [Suspect]
     Indication: CHRONIC MYELOID LEUKAEMIA
     Dosage: 800 MG, DAILY
     Route: 048
     Dates: start: 20111101
  4. TASIGNA [Suspect]
     Dosage: 600 MG, DAILY DOSE
     Route: 048
     Dates: start: 20120715
  5. ASPIRIN [Concomitant]
     Dosage: 1 DF, DAILY
     Route: 048
     Dates: start: 19930101
  6. KERLAN [Concomitant]
     Dosage: 0.5 DF, HALF TABLET PER 12 HOURS
     Route: 048
     Dates: start: 20030101
  7. LEXOTANIL [Concomitant]
     Dosage: 0.5 DF, HALF TABLET PER 12 HOURS
     Route: 048
     Dates: start: 20070101
  8. PROPRANOLOL [Concomitant]
     Dosage: UNK

REACTIONS (2)
  - THROMBOCYTOPENIA [None]
  - ANAEMIA [None]
